FAERS Safety Report 16661912 (Version 3)
Quarter: 2019Q3

REPORT INFORMATION
  Report Type: Spontaneous
  Country: US (occurrence: US)
  Receive Date: 20190802
  Receipt Date: 20190903
  Transmission Date: 20191004
  Serious: No
  Sender: FDA-Public Use
  Company Number: US-SUNOVION-2019SUN003096

PATIENT
  Age: 38 Year
  Sex: Female
  Weight: 40.54 kg

DRUGS (5)
  1. APTIOM [Suspect]
     Active Substance: ESLICARBAZEPINE ACETATE
     Dosage: 900 MG, QD
     Route: 048
     Dates: start: 20190629, end: 20190712
  2. APTIOM [Suspect]
     Active Substance: ESLICARBAZEPINE ACETATE
     Dosage: 900 MG, QD
     Route: 048
     Dates: start: 20190403, end: 20190424
  3. APTIOM [Suspect]
     Active Substance: ESLICARBAZEPINE ACETATE
     Dosage: 600 MG, QD
     Route: 048
     Dates: start: 20190712, end: 20190717
  4. APTIOM [Suspect]
     Active Substance: ESLICARBAZEPINE ACETATE
     Indication: SEIZURE
     Dosage: 600 MG, QD
     Route: 048
     Dates: start: 20190304, end: 20190403
  5. APTIOM [Suspect]
     Active Substance: ESLICARBAZEPINE ACETATE
     Dosage: 1200 MG, QD
     Route: 048
     Dates: start: 20190424, end: 20190629

REACTIONS (5)
  - Anaemia [Unknown]
  - Blood potassium abnormal [Not Recovered/Not Resolved]
  - Therapeutic response unexpected [Unknown]
  - Blood sodium increased [Recovering/Resolving]
  - Blood potassium increased [Not Recovered/Not Resolved]

NARRATIVE: CASE EVENT DATE: 20190426
